FAERS Safety Report 4441668-3 (Version None)
Quarter: 2004Q3

REPORT INFORMATION
  Report Type: 
  Country: None (occurrence: None)
  Receive Date: 20040907
  Receipt Date: 20040826
  Transmission Date: 20050211
  Serious: Yes (Hospitalization)
  Sender: FDA-Public Use
  Company Number: US-JNJFOC-20040605744

PATIENT
  Sex: Male

DRUGS (17)
  1. ULTRAM [Suspect]
     Indication: DRUG USE FOR UNKNOWN INDICATION
     Route: 049
  2. RANIBIZUMAB [Suspect]
     Indication: MACULAR DEGENERATION
     Route: 050
     Dates: start: 20030902
  3. PLACEBO [Suspect]
     Indication: MACULAR DEGENERATION
  4. FEXOFENADINE HCL [Concomitant]
  5. ASPIRIN [Concomitant]
  6. FUROSEMIDE [Concomitant]
  7. ISOSORBIDE [Concomitant]
  8. PANTOPRAZOLE [Concomitant]
  9. SIMVASTATIN [Concomitant]
  10. FINASTERIDE [Concomitant]
  11. TERAZOSIN HCL [Concomitant]
  12. TRIAZOLAM [Concomitant]
  13. ENALAPRIL [Concomitant]
  14. METOPROLOL [Concomitant]
  15. CELECOXIB [Concomitant]
  16. ALBUTEROL [Concomitant]
  17. XANAX [Concomitant]

REACTIONS (4)
  - AMNESIA [None]
  - CONVULSION [None]
  - INFLUENZA [None]
  - SYNCOPE [None]
